FAERS Safety Report 15252474 (Version 1)
Quarter: 2018Q3

REPORT INFORMATION
  Report Type: Spontaneous
  Country: US (occurrence: US)
  Receive Date: 20180807
  Receipt Date: 20180807
  Transmission Date: 20181010
  Serious: No
  Sender: FDA-Public Use
  Company Number: US-RADIUS HEALTH INC.-2018US000210

PATIENT
  Age: 73 Year
  Sex: Female

DRUGS (3)
  1. TYMLOS [Suspect]
     Active Substance: ABALOPARATIDE
     Indication: OSTEOPOROSIS POSTMENOPAUSAL
     Dosage: 80 MCG, DAILY
     Route: 058
     Dates: start: 20180125
  2. TYMLOS [Suspect]
     Active Substance: ABALOPARATIDE
     Dosage: UNK
     Route: 058
     Dates: start: 20180410
  3. TYMLOS [Suspect]
     Active Substance: ABALOPARATIDE
     Dosage: 80 MCG, DAILY
     Route: 058
     Dates: start: 20180210

REACTIONS (14)
  - Pruritus [Unknown]
  - Anxiety [Unknown]
  - Hyperaesthesia [Not Recovered/Not Resolved]
  - Nausea [Recovering/Resolving]
  - Feeling jittery [Unknown]
  - Headache [Recovering/Resolving]
  - Poor quality sleep [Unknown]
  - Needle issue [Unknown]
  - Palmar erythema [Unknown]
  - Injection site bruising [Unknown]
  - Feeling hot [Unknown]
  - Hypotension [Unknown]
  - Plantar erythema [Not Recovered/Not Resolved]
  - Feeling hot [Not Recovered/Not Resolved]

NARRATIVE: CASE EVENT DATE: 20180125
